FAERS Safety Report 21731482 (Version 2)
Quarter: 2022Q4

REPORT INFORMATION
  Report Type: Spontaneous
  Country: TW (occurrence: None)
  Receive Date: 20221215
  Receipt Date: 20221229
  Transmission Date: 20230113
  Serious: Yes (Hospitalization, Other)
  Sender: FDA-Public Use
  Company Number: TW-Unichem Pharmaceuticals (USA) Inc-UCM202212-001304

PATIENT
  Age: 58 Year
  Sex: Male

DRUGS (1)
  1. BACLOFEN [Suspect]
     Active Substance: BACLOFEN
     Indication: Hiccups
     Dosage: WITH 12 HOURS OF INTERVALS

REACTIONS (5)
  - Neurotoxicity [Recovered/Resolved]
  - Dystonia [Recovered/Resolved]
  - Mental status changes [Recovered/Resolved]
  - Hyporeflexia [Recovered/Resolved]
  - Product use in unapproved indication [Unknown]
